FAERS Safety Report 21840000 (Version 1)
Quarter: 2023Q1

REPORT INFORMATION
  Report Type: Spontaneous
  Country: FR (occurrence: FR)
  Receive Date: 20230110
  Receipt Date: 20230110
  Transmission Date: 20230418
  Serious: Yes (Other)
  Sender: FDA-Public Use
  Company Number: None

PATIENT
  Age: 71 Year
  Sex: Female

DRUGS (7)
  1. HYDROXYUREA [Suspect]
     Active Substance: HYDROXYUREA
     Indication: Thrombocytopenia
     Dosage: 1CP 5 DAYS /7, THE DOCTORS INTRODUCED HYDREA AT 2 CAPSULES PER DAY.
     Route: 048
     Dates: start: 20130517
  2. HYDROXYUREA [Suspect]
     Active Substance: HYDROXYUREA
     Indication: Thrombocytopenia
     Dosage: 1CP/D
     Dates: start: 20140617
  3. HYDROXYUREA [Suspect]
     Active Substance: HYDROXYUREA
     Indication: Thrombocytopenia
     Dosage: DOSAGE IS DECREASED AGAIN TO 1CP 5 DAYS/7
     Dates: start: 201507
  4. CLOZAPINE [Concomitant]
     Active Substance: CLOZAPINE
     Dosage: 0-0-1
  5. AMLODIPINE BESYLATE [Concomitant]
     Active Substance: AMLODIPINE BESYLATE
     Dosage: 1-0-1, BID
  6. SINEMET [Concomitant]
     Active Substance: CARBIDOPA\LEVODOPA
     Dosage: TID, 1-1-1
  7. CLOPIDOGREL [Concomitant]
     Active Substance: CLOPIDOGREL BISULFATE
     Dosage: 1-0-0

REACTIONS (1)
  - Neurodegenerative disorder [Not Recovered/Not Resolved]

NARRATIVE: CASE EVENT DATE: 20190101
